FAERS Safety Report 6464413-9 (Version None)
Quarter: 2009Q4

REPORT INFORMATION
  Report Type: 
  Country: None (occurrence: None)
  Receive Date: 20091124
  Receipt Date: 20091111
  Transmission Date: 20100525
  Serious: Yes (Hospitalization)
  Sender: FDA-Public Use
  Company Number: 20097712

PATIENT
  Age: 62 Year
  Sex: Female

DRUGS (10)
  1. LIORESAL [Suspect]
     Indication: MUSCLE SPASTICITY
     Dosage: MCG, DAILY, INTRATHECAL
     Route: 037
  2. ZICONOTIDE [Concomitant]
  3. MORPHINE [Concomitant]
  4. CLONIDINE [Concomitant]
  5. MAGNESIUM OXIDE [Concomitant]
  6. HEMOCYTE [Concomitant]
  7. RENAGEL [Concomitant]
  8. AMERYL [Concomitant]
  9. COUMADIN [Concomitant]
  10. LISINOPRIL [Concomitant]

REACTIONS (14)
  - AGGRESSION [None]
  - ANGER [None]
  - BLOOD CREATININE INCREASED [None]
  - BLOOD UREA INCREASED [None]
  - DEMENTIA [None]
  - DRUG WITHDRAWAL SYNDROME [None]
  - HALLUCINATION [None]
  - HYPOTENSION [None]
  - MENTAL DISORDER [None]
  - MENTAL STATUS CHANGES [None]
  - OVERDOSE [None]
  - PARANOIA [None]
  - RESPIRATORY DEPRESSION [None]
  - UNDERDOSE [None]
